FAERS Safety Report 6462499-9 (Version None)
Quarter: 2009Q4

REPORT INFORMATION
  Report Type: 
  Country: None (occurrence: None)
  Receive Date: 20091130
  Receipt Date: 20091118
  Transmission Date: 20100525
  Serious: Yes (Life-Threatening, Hospitalization, Other)
  Sender: FDA-Public Use
  Company Number: ES-ELI_LILLY_AND_COMPANY-ES200911004867

PATIENT
  Age: 83 Year
  Sex: Female

DRUGS (4)
  1. FORTEO [Suspect]
     Indication: BACK PAIN
     Dosage: 20 UG, UNKNOWN
     Route: 058
     Dates: start: 20090701, end: 20090101
  2. ANALGESICS [Concomitant]
     Indication: PAIN
     Dosage: UNK, UNKNOWN
     Route: 065
  3. LYRICA [Concomitant]
     Dosage: UNK, UNKNOWN
     Route: 065
  4. ANTIDEPRESSANTS [Concomitant]
     Dosage: UNK, UNKNOWN
     Route: 065

REACTIONS (4)
  - LOSS OF CONSCIOUSNESS [None]
  - MULTIPLE MYELOMA [None]
  - OFF LABEL USE [None]
  - RENAL FAILURE [None]
